FAERS Safety Report 9442461 (Version 1)
Quarter: 2013Q3

REPORT INFORMATION
  Report Type: Spontaneous
  Country: US (occurrence: None)
  Receive Date: 20130805
  Receipt Date: 20130805
  Transmission Date: 20140515
  Serious: No
  Sender: FDA-Public Use
  Company Number: None

PATIENT
  Age: 11 Year
  Sex: Male
  Weight: 30.84 kg

DRUGS (2)
  1. METHYLPHENIDATE HYDROCHLORIDE [Suspect]
     Indication: ATTENTION DEFICIT/HYPERACTIVITY DISORDER
     Route: 048
     Dates: start: 20130121, end: 20130731
  2. METADATE ER [Suspect]
     Indication: ATTENTION DEFICIT/HYPERACTIVITY DISORDER
     Dosage: 1X/DAY IN AM BY MOUTH
     Route: 048
     Dates: start: 20130121, end: 20130731

REACTIONS (5)
  - Nervousness [None]
  - Anxiety [None]
  - Dermatillomania [None]
  - Scab [None]
  - Hallucination, visual [None]
